FAERS Safety Report 8421098-X (Version None)
Quarter: 2012Q2

REPORT INFORMATION
  Report Type: 
  Country: None (occurrence: None)
  Receive Date: 20120604
  Receipt Date: 20120604
  Transmission Date: 20120825
  Serious: No
  Sender: FDA-Public Use
  Company Number: None

PATIENT
  Sex: Female
  Weight: 20.4119 kg

DRUGS (1)
  1. METHYLPHENIDATE [Suspect]
     Indication: ATTENTION DEFICIT/HYPERACTIVITY DISORDER
     Dosage: 5MG 2X DAY PO
     Route: 048
     Dates: start: 20120520, end: 20120524

REACTIONS (2)
  - PRODUCT QUALITY ISSUE [None]
  - DRUG INEFFECTIVE [None]
